FAERS Safety Report 6826282-4 (Version None)
Quarter: 2010Q3

REPORT INFORMATION
  Report Type: 
  Country: None (occurrence: None)
  Receive Date: 20100709
  Receipt Date: 20100629
  Transmission Date: 20110219
  Serious: Yes (Hospitalization)
  Sender: FDA-Public Use
  Company Number: ES-PFIZER INC-2010080674

PATIENT
  Age: 51 Year
  Sex: Male

DRUGS (5)
  1. ALDACTONE [Suspect]
     Indication: CHRONIC HEPATITIS
     Dosage: 100 MG DAILY
     Route: 048
     Dates: start: 20060101, end: 20100429
  2. LORMETAZEPAM [Interacting]
     Indication: SLEEP DISORDER DUE TO GENERAL MEDICAL CONDITION, INSOMNIA TYPE
     Dosage: 2.5 MG DAILY
     Route: 048
     Dates: start: 20100409, end: 20100429
  3. FUROSEMIDE [Interacting]
     Indication: CHRONIC HEPATITIS
     Dosage: 20 MG DAILY
     Route: 048
     Dates: start: 20060101, end: 20100429
  4. OMEPRAZOLE [Concomitant]
     Indication: PROPHYLAXIS
     Dosage: 20 MG DAILY
     Route: 048
     Dates: start: 20060101
  5. PROPRANOLOL [Concomitant]
     Indication: CHRONIC HEPATITIS
     Dosage: 40 MG DAILY
     Route: 048
     Dates: start: 20060101

REACTIONS (2)
  - DRUG INTERACTION [None]
  - HEPATIC ENCEPHALOPATHY [None]
